FAERS Safety Report 4343961-1 (Version None)
Quarter: 2004Q2

REPORT INFORMATION
  Report Type: 
  Country: None (occurrence: None)
  Receive Date: 20040422
  Receipt Date: 20040218
  Transmission Date: 20050107
  Serious: Yes (Death, Life-Threatening)
  Sender: FDA-Public Use
  Company Number: JP-ROCHE-359477

PATIENT
  Age: 59 Year
  Sex: Male

DRUGS (16)
  1. ROCEPHIN [Suspect]
     Indication: INFECTION
     Route: 041
     Dates: start: 20040206, end: 20040206
  2. BASEN [Suspect]
     Indication: DIABETES MELLITUS
     Route: 048
  3. KEFRAL [Suspect]
     Indication: BACTERIAL INFECTION
     Route: 048
     Dates: start: 20040206, end: 20040208
  4. LOXONIN [Suspect]
     Route: 048
     Dates: start: 20040206, end: 20040208
  5. PL [Suspect]
     Dosage: ALSO DESCRIBED AS TAKEN FROM 05 FEB 2004 TO 08 FEB 2004.
     Route: 048
     Dates: start: 20040119, end: 20040122
  6. UNKNOWN MEDICATION [Suspect]
     Dosage: DESCRIBED AS GREEN POWDER.
     Route: 065
  7. VITAMEDIN [Concomitant]
     Route: 041
     Dates: start: 20040206, end: 20040206
  8. VOLTAREN [Concomitant]
     Dates: start: 20040206, end: 20040208
  9. PRIMAXIN [Concomitant]
     Indication: INFLAMMATION
     Route: 041
     Dates: start: 20040217, end: 20040220
  10. DIFLUCAN [Concomitant]
     Indication: INFLAMMATION
     Route: 041
     Dates: start: 20040217, end: 20040220
  11. MENATETRENONE [Concomitant]
     Route: 041
     Dates: start: 20040218, end: 20040228
  12. GASTER [Concomitant]
     Indication: PROPHYLAXIS
     Route: 042
     Dates: start: 20040218, end: 20040228
  13. GLYCEOL [Concomitant]
     Indication: BRAIN OEDEMA
     Route: 041
     Dates: start: 20040218, end: 20040224
  14. ALEVIATIN [Concomitant]
     Indication: CONVULSION
     Dosage: ROTE DESCRIBED AS UV.
     Route: 050
     Dates: start: 20040217, end: 20040226
  15. FUNGUARD [Concomitant]
     Indication: BLOOD BETA-D-GLUCAN INCREASED
     Route: 041
     Dates: start: 20040221, end: 20040227
  16. VANCOMYCIN [Concomitant]
     Indication: INFLAMMATION
     Route: 041
     Dates: start: 20040223, end: 20040227

REACTIONS (8)
  - ACUTE RESPIRATORY FAILURE [None]
  - COMA HEPATIC [None]
  - HAEMODIALYSIS [None]
  - HEPATIC FAILURE [None]
  - HEPATITIS FULMINANT [None]
  - LYMPHADENOPATHY [None]
  - LYMPHOCYTE STIMULATION TEST POSITIVE [None]
  - SPLENIC NEOPLASM MALIGNANCY UNSPECIFIED [None]
